FAERS Safety Report 16762875 (Version 2)
Quarter: 2020Q2

REPORT INFORMATION
  Report Type: Spontaneous
  Country: FR (occurrence: FR)
  Receive Date: 20190901
  Receipt Date: 20200610
  Transmission Date: 20200713
  Serious: Yes (Other)
  Sender: FDA-Public Use
  Company Number: PHHY2019FR199967

PATIENT
  Age: 10 Year
  Sex: Female

DRUGS (1)
  1. CETIRIZINE [Suspect]
     Active Substance: CETIRIZINE HYDROCHLORIDE
     Indication: PRODUCT USED FOR UNKNOWN INDICATION
     Dosage: 10 MG TABLETS 2 DF(0.49MG/KG)
     Route: 048

REACTIONS (6)
  - Headache [Unknown]
  - Disorientation [Unknown]
  - Accidental overdose [Unknown]
  - Confusional state [Unknown]
  - Toxicity to various agents [Unknown]
  - Speech disorder [Unknown]
